FAERS Safety Report 6718530-6 (Version None)
Quarter: 2010Q2

REPORT INFORMATION
  Report Type: 
  Country: None (occurrence: None)
  Receive Date: 20100504
  Receipt Date: 20100423
  Transmission Date: 20101027
  Serious: Yes (Hospitalization)
  Sender: FDA-Public Use
  Company Number: 7002373

PATIENT
  Sex: Female

DRUGS (3)
  1. REBIF [Suspect]
     Indication: CELLULITIS
     Dosage: SUBCUTANEOUS
     Route: 058
  2. REBIF [Suspect]
     Indication: DRUG USE FOR UNKNOWN INDICATION
     Dosage: SUBCUTANEOUS
     Route: 058
  3. UNSPECIFIED MEDICATION (ALL OTHER THERAPEUTIC PRODUCTS) [Suspect]
     Indication: CELLULITIS

REACTIONS (2)
  - CELLULITIS [None]
  - DIARRHOEA [None]
